FAERS Safety Report 15772831 (Version 7)
Quarter: 2019Q1

REPORT INFORMATION
  Report Type: Spontaneous
  Country: FR (occurrence: FR)
  Receive Date: 20181228
  Receipt Date: 20190318
  Transmission Date: 20190417
  Serious: Yes (Hospitalization, Other)
  Sender: FDA-Public Use
  Company Number: FR-PFIZER INC-2018397156

PATIENT
  Age: 59 Year
  Sex: Female

DRUGS (5)
  1. CELEBREX [Suspect]
     Active Substance: CELECOXIB
     Dosage: 200 MG, 2X/DAY
     Dates: start: 20120114
  2. ADVIL [Suspect]
     Active Substance: IBUPROFEN
     Dosage: 2 DF, UNK
     Dates: start: 201112, end: 201201
  3. IXPRIM [Concomitant]
     Active Substance: ACETAMINOPHEN\TRAMADOL HYDROCHLORIDE
     Dosage: 1 DF, 3X/DAY
     Dates: start: 20120114
  4. KETUM [Concomitant]
     Active Substance: KETOPROFEN
     Dosage: 1 DF, DAILY
     Dates: start: 20120114
  5. MYOLASTAN [Concomitant]
     Active Substance: TETRAZEPAM
     Dosage: 1 DF, DAILY
     Dates: start: 20120114

REACTIONS (13)
  - Contraindicated product administered [Unknown]
  - Cholangitis [Unknown]
  - Fatigue [Unknown]
  - Cholestasis [Recovering/Resolving]
  - Hepatic artery thrombosis [Unknown]
  - Gait disturbance [Unknown]
  - Asthenia [Unknown]
  - Hepatitis cholestatic [Unknown]
  - Loss of personal independence in daily activities [Unknown]
  - Weight decreased [Unknown]
  - Vanishing bile duct syndrome [Unknown]
  - Hepatic failure [Unknown]
  - Gastroenteritis [Unknown]

NARRATIVE: CASE EVENT DATE: 201201
